FAERS Safety Report 5481146-6 (Version None)
Quarter: 2007Q4

REPORT INFORMATION
  Report Type: 
  Country: None (occurrence: None)
  Receive Date: 20071004
  Receipt Date: 20070926
  Transmission Date: 20080405
  Serious: Yes (Other)
  Sender: FDA-Public Use
  Company Number: TPA2007A01997

PATIENT
  Age: 75 Year
  Sex: Female
  Weight: 77.1115 kg

DRUGS (4)
  1. ACTOS [Suspect]
     Indication: TYPE 2 DIABETES MELLITUS
     Dosage: 45 MG, QPM, PER ORAL
     Route: 048
     Dates: start: 19990101, end: 20070901
  2. HYDROCHLOROTHIAZIDE [Concomitant]
  3. ALTACE [Concomitant]
  4. LIPITOR [Concomitant]

REACTIONS (7)
  - FLUID RETENTION [None]
  - FRACTURE [None]
  - PAIN [None]
  - STRESS FRACTURE [None]
  - TIBIA FRACTURE [None]
  - WEIGHT DECREASED [None]
  - WEIGHT INCREASED [None]
